FAERS Safety Report 4492014-0 (Version None)
Quarter: 2004Q4

REPORT INFORMATION
  Report Type: 
  Country: None (occurrence: None)
  Receive Date: 20041029
  Receipt Date: 20040623
  Transmission Date: 20050328
  Serious: Yes (Other)
  Sender: FDA-Public Use
  Company Number: 602#1#2004-00001

PATIENT
  Age: 52 Year
  Sex: Female

DRUGS (7)
  1. MOEXIPRIL,                (MOEXIPRIL) [Suspect]
     Indication: HYPERTENSION
     Dosage: 1.15 MG (15MG 1 IN 1 DAY (S)) ORAL
     Route: 048
     Dates: start: 20020725, end: 20040425
  2. SIMVASTATIN [Concomitant]
  3. BETAXOLOLI-HYDROCHLORIDE (BETAXOLOL HYDROCHLORIDE) [Concomitant]
  4. AMILORIDI-HYDROCHLORIDE-ANHYDRIDE [Concomitant]
  5. DIAZEPAM [Concomitant]
  6. MAGNESIUM-PYRIDOXIN () [Concomitant]
  7. FOSINOPRIL (FOSINOPRIL SODIUM) [Concomitant]

REACTIONS (2)
  - MENORRHAGIA [None]
  - METRORRHAGIA [None]
